FAERS Safety Report 4591763-3 (Version None)
Quarter: 2005Q1

REPORT INFORMATION
  Report Type: 
  Country: None (occurrence: None)
  Receive Date: 20050125
  Receipt Date: 20040812
  Transmission Date: 20050727
  Serious: No
  Sender: FDA-Public Use
  Company Number: USA040875396

PATIENT
  Age: 87 Year
  Sex: Female
  Weight: 41 kg

DRUGS (8)
  1. FORTEO [Suspect]
     Indication: OSTEOPOROSIS
     Dosage: 20 UG/1 DAY
     Dates: start: 20040722
  2. LEVOXYL [Concomitant]
  3. METOPROLOL TARTRATE [Concomitant]
  4. GLUCOSAMINE [Concomitant]
  5. LISINOPRIL [Concomitant]
  6. ACIPHEX [Concomitant]
  7. ISORDIL [Concomitant]
  8. FERROUS SULFATE TAB [Concomitant]

REACTIONS (3)
  - DECREASED APPETITE [None]
  - HEADACHE [None]
  - STOMACH DISCOMFORT [None]
